FAERS Safety Report 21166363 (Version 3)
Quarter: 2022Q4

REPORT INFORMATION
  Report Type: Spontaneous
  Country: JP (occurrence: JP)
  Receive Date: 20220803
  Receipt Date: 20221107
  Transmission Date: 20230113
  Serious: Yes (Death, Hospitalization, Other)
  Sender: FDA-Public Use
  Company Number: JP-MSD-2207JPN003005J

PATIENT
  Age: 75 Year
  Sex: Male

DRUGS (4)
  1. LAGEVRIO [Suspect]
     Active Substance: MOLNUPIRAVIR
     Indication: COVID-19 treatment
     Dosage: 800 MILLIGRAM, BID
     Route: 048
     Dates: start: 20220720, end: 20220724
  2. ARIPIPRAZOLE [Suspect]
     Active Substance: ARIPIPRAZOLE
     Indication: Delirium
     Dosage: 3 MILLIGRAM, QD
     Route: 048
     Dates: start: 20220607, end: 20220726
  3. RIVOTRIL [Suspect]
     Active Substance: CLONAZEPAM
     Indication: Delirium
     Dosage: 0.5 MILLIGRAM, QD
     Route: 048
     Dates: start: 20220609, end: 20220726
  4. MEMANTINE HYDROCHLORIDE [Suspect]
     Active Substance: MEMANTINE HYDROCHLORIDE
     Indication: Delirium
     Dosage: 5 MILLIGRAM, QD
     Route: 048
     Dates: start: 20220609, end: 20220712

REACTIONS (1)
  - Hepatitis fulminant [Fatal]

NARRATIVE: CASE EVENT DATE: 20220725
